FAERS Safety Report 8518142-8 (Version None)
Quarter: 2012Q3

REPORT INFORMATION
  Report Type: 
  Country: None (occurrence: None)
  Receive Date: 20120718
  Receipt Date: 20111026
  Transmission Date: 20120928
  Serious: No
  Sender: FDA-Public Use
  Company Number: US-BRISTOL-MYERS SQUIBB COMPANY-16115271

PATIENT
  Age: 79 Year
  Sex: Male

DRUGS (1)
  1. COUMADIN [Suspect]
     Dosage: 1 D.F:5MG AND 7MG DOSE

REACTIONS (2)
  - THERAPEUTIC RESPONSE DECREASED [None]
  - PROTHROMBIN TIME SHORTENED [None]
